FAERS Safety Report 9417864 (Version 4)
Quarter: 2014Q1

REPORT INFORMATION
  Report Type: Report from Study
  Country: US (occurrence: US)
  Receive Date: 20130724
  Receipt Date: 20140310
  Transmission Date: 20141002
  Serious: Yes (Other)
  Sender: FDA-Public Use
  Company Number: US-TEVA-420645USA

PATIENT
  Age: 20 Year
  Sex: Female

DRUGS (1)
  1. CLARAVIS [Suspect]
     Dosage: 60 MILLIGRAM DAILY;
     Route: 048
     Dates: start: 20130114, end: 20130618

REACTIONS (1)
  - Unintended pregnancy [Recovered/Resolved]
